FAERS Safety Report 8352799-X (Version None)
Quarter: 2012Q2

REPORT INFORMATION
  Report Type: 
  Country: None (occurrence: None)
  Receive Date: 20120511
  Receipt Date: 20120508
  Transmission Date: 20120825
  Serious: Yes (Death)
  Sender: FDA-Public Use
  Company Number: CN-ASTELLAS-2012US004627

PATIENT
  Age: 40 Year
  Sex: Female

DRUGS (1)
  1. TARCEVA [Suspect]
     Indication: NON-SMALL CELL LUNG CANCER
     Dosage: UNK
     Route: 048
     Dates: start: 20120416

REACTIONS (1)
  - PULMONARY EMBOLISM [None]
